FAERS Safety Report 7390396-3 (Version None)
Quarter: 2011Q2

REPORT INFORMATION
  Report Type: 
  Country: None (occurrence: None)
  Receive Date: 20110401
  Receipt Date: 20110322
  Transmission Date: 20111010
  Serious: Yes (Other)
  Sender: FDA-Public Use
  Company Number: PHHY2011US24176

PATIENT
  Sex: Female

DRUGS (1)
  1. RECLAST [Suspect]
     Dosage: 5 MG, UNK
     Route: 042

REACTIONS (11)
  - IMPAIRED WORK ABILITY [None]
  - INFLUENZA LIKE ILLNESS [None]
  - MUSCLE SPASMS [None]
  - JOINT SWELLING [None]
  - DIARRHOEA [None]
  - OEDEMA PERIPHERAL [None]
  - MYALGIA [None]
  - GAIT DISTURBANCE [None]
  - SJOGREN'S SYNDROME [None]
  - PAIN IN EXTREMITY [None]
  - MOVEMENT DISORDER [None]
